FAERS Safety Report 9527533 (Version 1)
Quarter: 2013Q1

REPORT INFORMATION
  Report Type: Spontaneous
  Country: US (occurrence: None)
  Receive Date: 20130314
  Receipt Date: 20130314
  Transmission Date: 20140127
  Serious: No
  Sender: FDA-Public Use
  Company Number: 1212USA007950

PATIENT
  Age: 53 Year
  Sex: Female

DRUGS (3)
  1. PEG-INTRON (PEGINTERFERON ALFA-2B) POWDER FOR INJECTION [Suspect]
     Indication: HEPATITIS C
     Dates: start: 20121203
  2. RIBAVIRIN (RIBAVIRIN) TABLET, 200 MG [Suspect]
     Indication: HEPATITIS C
     Route: 048
     Dates: start: 20121203
  3. VICTRELIS (BOCEPREVIR) CAPSULE [Suspect]
     Indication: HEPATITIS C
     Route: 048
     Dates: start: 20130121

REACTIONS (10)
  - Needle issue [None]
  - Haemoglobin decreased [None]
  - Nausea [None]
  - Nasal discomfort [None]
  - Flushing [None]
  - Hyperhidrosis [None]
  - Rash [None]
  - Injection site erythema [None]
  - Fatigue [None]
  - Somnolence [None]
